FAERS Safety Report 6162921-1 (Version None)
Quarter: 2009Q2

REPORT INFORMATION
  Report Type: 
  Country: None (occurrence: None)
  Receive Date: 20090421
  Receipt Date: 20090211
  Transmission Date: 20091009
  Serious: No
  Sender: FDA-Public Use
  Company Number: US-ASTRAZENECA-2009UW03949

PATIENT
  Sex: Female

DRUGS (1)
  1. TOPROL-XL [Suspect]
     Dosage: UNKNOWN
     Route: 048

REACTIONS (5)
  - BLOOD CHOLESTEROL INCREASED [None]
  - BLOOD TRIGLYCERIDES INCREASED [None]
  - HYPOPHAGIA [None]
  - STRESS [None]
  - WEIGHT INCREASED [None]
